FAERS Safety Report 6424863-3 (Version None)
Quarter: 2009Q4

REPORT INFORMATION
  Report Type: 
  Country: None (occurrence: None)
  Receive Date: 20091029
  Receipt Date: 20091015
  Transmission Date: 20100525
  Serious: Yes (Other)
  Sender: FDA-Public Use
  Company Number: 2009-4355

PATIENT
  Age: 73 Year
  Sex: Male

DRUGS (5)
  1. APO-GO AMPOULES (APO-GO) (APOMORPHINE HYDROCHLORIDE) (APOMORPHINE HYDR [Suspect]
     Indication: PARKINSON'S DISEASE
     Dosage: (30 MG, 1 IN 12 HR) ,SUBCUTANEOUS
     Route: 058
     Dates: start: 20061127, end: 20061128
  2. DOMPERIDONE (DOMPERIDONE) [Concomitant]
  3. ADCAL D-3 (LEKOVIT CA) [Concomitant]
  4. ROPINIROLE [Concomitant]
  5. STALEVO (SINEMET) [Concomitant]

REACTIONS (5)
  - FEELING HOT [None]
  - FLUSHING [None]
  - MUSCLE RIGIDITY [None]
  - PSYCHOTIC BEHAVIOUR [None]
  - TREMOR [None]
